FAERS Safety Report 9143495 (Version 3)
Quarter: 2013Q1

REPORT INFORMATION
  Report Type: Report from Study
  Country: US (occurrence: US)
  Receive Date: 20130306
  Receipt Date: 20130314
  Transmission Date: 20140127
  Serious: Yes (Hospitalization)
  Sender: FDA-Public Use
  Company Number: US-AMGEN-USACT2013015260

PATIENT
  Age: 59 Year
  Sex: Male
  Weight: 86 kg

DRUGS (9)
  1. PANITUMUMAB [Suspect]
     Indication: NON-SMALL CELL LUNG CANCER
     Dosage: UNK
  2. CARBOPLATIN [Concomitant]
     Indication: NON-SMALL CELL LUNG CANCER
     Dosage: 1050 MG, UNK
     Dates: start: 20121017
  3. TAXOL [Concomitant]
     Indication: NON-SMALL CELL LUNG CANCER
     Dosage: 520 MG, UNK
     Dates: start: 20121017
  4. LORAZEPAM [Concomitant]
     Indication: ANXIETY
     Dosage: 1 MG, AS NECESSARY
     Route: 048
  5. LORTAB [Concomitant]
     Indication: PAIN
     Dosage: 10 MG, AS NECESSARY
     Route: 048
  6. MORPHINE [Concomitant]
     Indication: PAIN
     Dosage: 60 MG, Q12H
     Route: 048
  7. ZOFRAN [Concomitant]
     Indication: NAUSEA
     Dosage: 8 MG, AS NECESSARY
     Route: 048
  8. ZOFRAN [Concomitant]
     Indication: VOMITING
  9. ZEGERID [Concomitant]
     Dosage: 20 MG, UNK
     Route: 048

REACTIONS (2)
  - Vocal cord paralysis [Recovering/Resolving]
  - Dyspnoea [Unknown]
